FAERS Safety Report 5574296-7 (Version None)
Quarter: 2007Q4

REPORT INFORMATION
  Report Type: 
  Country: None (occurrence: None)
  Receive Date: 20071226
  Receipt Date: 20071226
  Transmission Date: 20080405
  Serious: No
  Sender: FDA-Public Use
  Company Number: None

PATIENT
  Sex: Male

DRUGS (1)
  1. SIMVASTATIN [Suspect]
     Indication: BLOOD CHOLESTEROL INCREASED
     Dosage: 20 MG ONCE DAILY ORAL
     Route: 048
     Dates: start: 20071127, end: 20071214

REACTIONS (2)
  - GLOSSODYNIA [None]
  - PARAESTHESIA ORAL [None]
